FAERS Safety Report 4841576-X (Version None)
Quarter: 2005Q4

REPORT INFORMATION
  Report Type: 
  Country: None (occurrence: None)
  Receive Date: 20051130
  Receipt Date: 20050825
  Transmission Date: 20060501
  Serious: No
  Sender: FDA-Public Use
  Company Number: US-GLAXOSMITHKLINE-A0571865A

PATIENT
  Age: 31 Year
  Sex: Female

DRUGS (4)
  1. WELLBUTRIN XL [Suspect]
     Indication: DEPRESSION
     Dosage: 150MG PER DAY
     Route: 048
     Dates: start: 20050815
  2. ATENOLOL [Concomitant]
  3. PREVACID [Concomitant]
  4. ORTHO CYCLEN-28 [Concomitant]

REACTIONS (3)
  - HEADACHE [None]
  - MYALGIA [None]
  - TINNITUS [None]
